FAERS Safety Report 24673750 (Version 2)
Quarter: 2024Q4

REPORT INFORMATION
  Report Type: Spontaneous
  Country: JP (occurrence: JP)
  Receive Date: 20241128
  Receipt Date: 20241205
  Transmission Date: 20250114
  Serious: Yes (Other)
  Sender: ROCHE
  Company Number: JP-002147023-NVSJ2024JP013765

PATIENT
  Age: 78 Year
  Sex: Female

DRUGS (3)
  1. LUCENTIS [Suspect]
     Active Substance: RANIBIZUMAB
     Indication: Retinal vein occlusion
     Dosage: UNK
     Route: 050
     Dates: start: 202309
  2. LUCENTIS [Suspect]
     Active Substance: RANIBIZUMAB
     Dosage: UNK
     Route: 050
  3. DENOSUMAB [Concomitant]
     Active Substance: DENOSUMAB
     Indication: Osteoporosis
     Dosage: UNK
     Route: 065

REACTIONS (18)
  - Amaurosis [Unknown]
  - Cataract [Unknown]
  - Vision blurred [Unknown]
  - Generalised oedema [Unknown]
  - Photosensitivity reaction [Unknown]
  - Dermatitis [Unknown]
  - Hypersensitivity [Unknown]
  - Scintillating scotoma [Unknown]
  - Conjunctivitis [Unknown]
  - Vitreous floaters [Unknown]
  - Anaemia [Unknown]
  - Renal atrophy [Unknown]
  - Oedema peripheral [Recovering/Resolving]
  - Discomfort [Unknown]
  - Eye oedema [Unknown]
  - Gait disturbance [Unknown]
  - Drug ineffective [Unknown]
  - Arthralgia [Unknown]
